FAERS Safety Report 9151810 (Version 3)
Quarter: 2013Q2

REPORT INFORMATION
  Report Type: Report from Study
  Country: IT (occurrence: IT)
  Receive Date: 20130308
  Receipt Date: 20130513
  Transmission Date: 20140414
  Serious: Yes (Other)
  Sender: FDA-Public Use
  Company Number: IT-ASTRAZENECA-2013SE03518

PATIENT
  Age: 26136 Day
  Sex: Male

DRUGS (8)
  1. AZD6140 [Suspect]
     Indication: CORONARY ARTERY DISEASE
     Route: 048
     Dates: start: 20111124, end: 20130103
  2. CARDIOASPIRIN [Suspect]
     Route: 048
     Dates: end: 20130103
  3. SEACOR [Concomitant]
     Indication: ACUTE MYOCARDIAL INFARCTION
     Route: 048
  4. PROCAPTAN [Concomitant]
     Indication: HYPERTENSION
     Route: 048
  5. OMEPRAZEN [Concomitant]
     Indication: GASTRITIS PROPHYLAXIS
     Route: 048
     Dates: start: 20110916
  6. TORVAST [Concomitant]
     Indication: ACUTE MYOCARDIAL INFARCTION
     Route: 048
  7. DILATREND [Concomitant]
     Indication: ACUTE MYOCARDIAL INFARCTION
     Route: 048
  8. METFORMINA [Concomitant]
     Indication: TYPE 2 DIABETES MELLITUS
     Route: 048
     Dates: start: 20110114

REACTIONS (2)
  - Duodenal ulcer [Not Recovered/Not Resolved]
  - Adenomatous polyposis coli [Not Recovered/Not Resolved]
